FAERS Safety Report 20795515 (Version 2)
Quarter: 2022Q2

REPORT INFORMATION
  Report Type: Spontaneous
  Country: CA (occurrence: CA)
  Receive Date: 20220506
  Receipt Date: 20220630
  Transmission Date: 20220721
  Serious: Yes (Hospitalization)
  Sender: FDA-Public Use
  Company Number: CA-SPECGX-T202200662

PATIENT
  Age: 47 Year
  Sex: Male

DRUGS (15)
  1. METHADOSE [Suspect]
     Active Substance: METHADONE HYDROCHLORIDE
     Indication: Drug use disorder
     Dosage: UNK (MAXIMUM DOSE OF 200 MG PER DAY)
     Route: 065
  2. FENTANYL [Suspect]
     Active Substance: FENTANYL
     Indication: Product used for unknown indication
     Dosage: 1/2 GRAM, PER DAY
     Route: 065
     Dates: start: 2018
  3. SUBOXONE [Suspect]
     Active Substance: BUPRENORPHINE HYDROCHLORIDE\NALOXONE HYDROCHLORIDE
     Indication: Drug use disorder
     Dosage: 1 MILLIGRAM, BID
     Route: 060
  4. SUBOXONE [Suspect]
     Active Substance: BUPRENORPHINE HYDROCHLORIDE\NALOXONE HYDROCHLORIDE
     Dosage: 4 MILLIGRAM, BID
     Route: 060
  5. SUBOXONE [Suspect]
     Active Substance: BUPRENORPHINE HYDROCHLORIDE\NALOXONE HYDROCHLORIDE
     Dosage: 12 MILLIGRAM, QD
     Route: 060
  6. SUBOXONE [Suspect]
     Active Substance: BUPRENORPHINE HYDROCHLORIDE\NALOXONE HYDROCHLORIDE
     Dosage: 2 MILLIGRAM, BID
     Route: 060
  7. SUBOXONE [Suspect]
     Active Substance: BUPRENORPHINE HYDROCHLORIDE\NALOXONE HYDROCHLORIDE
     Dosage: UNK
     Route: 060
  8. SUBOXONE [Suspect]
     Active Substance: BUPRENORPHINE HYDROCHLORIDE\NALOXONE HYDROCHLORIDE
     Dosage: 3 MILLIGRAM, BID
     Route: 060
  9. SUBOXONE [Suspect]
     Active Substance: BUPRENORPHINE HYDROCHLORIDE\NALOXONE HYDROCHLORIDE
     Dosage: 0.5 MILLIGRAM, BID (TITRATED TO A DAILY DOSE OF 32 MG)
     Route: 060
     Dates: start: 2018, end: 2018
  10. SUBOXONE [Suspect]
     Active Substance: BUPRENORPHINE HYDROCHLORIDE\NALOXONE HYDROCHLORIDE
     Dosage: UNK
     Route: 060
  11. SUBOXONE [Suspect]
     Active Substance: BUPRENORPHINE HYDROCHLORIDE\NALOXONE HYDROCHLORIDE
     Dosage: 0.5 MILLIGRAM, QD
     Route: 060
  12. AMPHETAMINE [Suspect]
     Active Substance: AMPHETAMINE
     Indication: Product used for unknown indication
     Dosage: UNK
     Route: 065
  13. COCAINE [Suspect]
     Active Substance: COCAINE
     Indication: Product used for unknown indication
     Dosage: UNK
     Route: 065
  14. HYDROMORPHONE [Concomitant]
     Active Substance: HYDROMORPHONE
     Indication: Drug use disorder
     Dosage: UNK
     Route: 042
  15. MORPHINE [Concomitant]
     Active Substance: MORPHINE
     Indication: Drug use disorder
     Dosage: MAXIMUM DOSE OF 560 MG/DAY
     Route: 048

REACTIONS (7)
  - Cellulitis [Unknown]
  - Prescribed overdose [Recovered/Resolved]
  - Drug abuse [Not Recovered/Not Resolved]
  - Wrong technique in product usage process [Recovered/Resolved]
  - Inappropriate schedule of product administration [Recovered/Resolved]
  - Off label use [Recovered/Resolved]
  - Drug effect less than expected [Recovered/Resolved]

NARRATIVE: CASE EVENT DATE: 20180101
